FAERS Safety Report 7209769-4 (Version None)
Quarter: 2011Q1

REPORT INFORMATION
  Report Type: 
  Country: None (occurrence: None)
  Receive Date: 20110104
  Receipt Date: 20101223
  Transmission Date: 20110831
  Serious: Yes (Hospitalization)
  Sender: FDA-Public Use
  Company Number: US-GENENTECH-310564

PATIENT
  Sex: Male
  Weight: 51 kg

DRUGS (2)
  1. CLARITIN [Concomitant]
     Indication: PRODUCT USED FOR UNKNOWN INDICATION
  2. NUTROPIN AQ [Suspect]
     Indication: BODY HEIGHT BELOW NORMAL
     Dosage: 2.4 MG, 6/WEEK
     Route: 058
     Dates: start: 20100926, end: 20101026

REACTIONS (6)
  - OBSESSIVE-COMPULSIVE DISORDER [None]
  - ANXIETY [None]
  - DISTURBANCE IN ATTENTION [None]
  - SINUSITIS [None]
  - ABNORMAL BEHAVIOUR [None]
  - HEADACHE [None]
